FAERS Safety Report 20911133 (Version 1)
Quarter: 2022Q2

REPORT INFORMATION
  Report Type: Report from Study
  Country: CN (occurrence: CN)
  Receive Date: 20220603
  Receipt Date: 20220603
  Transmission Date: 20220721
  Serious: Yes (Hospitalization, Other)
  Sender: FDA-Public Use
  Company Number: CN-BRISTOL-MYERS SQUIBB COMPANY-2022-047201

PATIENT
  Age: 69 Year
  Sex: Female
  Weight: 74.1 kg

DRUGS (13)
  1. AZACITIDINE [Suspect]
     Active Substance: AZACITIDINE
     Indication: Acute myeloid leukaemia
     Dosage: THE FIRST 7 DAY
     Route: 058
     Dates: start: 20220319, end: 20220428
  2. VENETOCLAX [Suspect]
     Active Substance: VENETOCLAX
     Indication: Acute myeloid leukaemia
     Dosage: 28 DAY CYCLE
     Route: 048
     Dates: start: 20220322, end: 20220515
  3. VENETOCLAX [Suspect]
     Active Substance: VENETOCLAX
     Dosage: 1 IN 1 D
     Route: 048
     Dates: start: 20220319, end: 20220408
  4. VENETOCLAX [Suspect]
     Active Substance: VENETOCLAX
     Dosage: 70 MG,1 IN 1 D
     Route: 048
     Dates: start: 20220409, end: 20220515
  5. MEROPENEM [Concomitant]
     Active Substance: MEROPENEM
     Indication: Infection prophylaxis
     Dosage: 2 IN 1 D
     Route: 041
     Dates: start: 20220515, end: 20220515
  6. MEROPENEM [Concomitant]
     Active Substance: MEROPENEM
     Dosage: 1 IN 1 D
     Route: 041
     Dates: start: 20220516, end: 20220516
  7. MEROPENEM [Concomitant]
     Active Substance: MEROPENEM
     Route: 041
     Dates: start: 20220513, end: 20220513
  8. MEROPENEM [Concomitant]
     Active Substance: MEROPENEM
     Dates: start: 20220514, end: 20220514
  9. RECOMBINANT HUMAN GRANULOCYTE COLONY STIMULATING FACTOR INJECTION [Concomitant]
     Indication: White blood cell count
     Dosage: 1 IN 1 D
     Route: 058
     Dates: start: 20220513, end: 20220513
  10. RECOMBINANT HUMAN GRANULOCYTE COLONY STIMULATING FACTOR INJECTION [Concomitant]
     Indication: Nutritional supplementation
     Dosage: 1 IN 1 D
     Route: 058
     Dates: start: 20220514, end: 20220514
  11. RECOMBINANT HUMAN GRANULOCYTE COLONY STIMULATING FACTOR INJECTION [Concomitant]
     Dosage: 1 IN 1 D
     Route: 058
     Dates: start: 20220515, end: 20220515
  12. RECOMBINANT HUMAN GRANULOCYTE COLONY STIMULATING FACTOR INJECTION [Concomitant]
     Dosage: 1 IN 1 D
     Route: 058
     Dates: start: 20220516, end: 20220516
  13. POSACONAZOLE [Concomitant]
     Active Substance: POSACONAZOLE
     Indication: Pneumonia
     Dosage: 2 IN 1 D
     Route: 048
     Dates: start: 20220409

REACTIONS (2)
  - Pancytopenia [Not Recovered/Not Resolved]
  - Subdural haemorrhage [Not Recovered/Not Resolved]

NARRATIVE: CASE EVENT DATE: 20220516
